FAERS Safety Report 15234714 (Version 1)
Quarter: 2018Q3

REPORT INFORMATION
  Report Type: Report from Study
  Country: FR (occurrence: FR)
  Receive Date: 20180803
  Receipt Date: 20180803
  Transmission Date: 20181010
  Serious: Yes (Other)
  Sender: FDA-Public Use
  Company Number: FR-TEVA-2018-FR-933995

PATIENT
  Age: 4 Year
  Sex: Male
  Weight: 18.2 kg

DRUGS (6)
  1. METHOTREXATE. [Suspect]
     Active Substance: METHOTREXATE
     Dosage: 12 MILLIGRAM DAILY;
     Route: 037
     Dates: start: 20170605, end: 20170704
  2. PEGASPARGASE [Suspect]
     Active Substance: PEGASPARGASE
     Indication: ACUTE LYMPHOCYTIC LEUKAEMIA
     Dosage: 1780 MILLIGRAM DAILY;
     Route: 042
     Dates: start: 20170611, end: 20170710
  3. 6?MERCAPTOPURINE MONOHYDRATE [Suspect]
     Active Substance: MERCAPTOPURINE
     Indication: ACUTE LYMPHOCYTIC LEUKAEMIA
     Dosage: 34 MILLIGRAM DAILY;
     Route: 048
     Dates: start: 20170604, end: 20170710
  4. VINCRISTINE [Suspect]
     Active Substance: VINCRISTINE
     Indication: ACUTE LYMPHOCYTIC LEUKAEMIA
     Dosage: 1 MILLIGRAM DAILY;
     Route: 042
     Dates: start: 20170604, end: 20170710
  5. DEXAMETHASONE. [Suspect]
     Active Substance: DEXAMETHASONE
     Indication: ACUTE LYMPHOCYTIC LEUKAEMIA
     Dosage: 4.2 MILLIGRAM DAILY;
     Route: 048
     Dates: start: 20170604, end: 20170707
  6. METHOTREXATE. [Suspect]
     Active Substance: METHOTREXATE
     Indication: ACUTE LYMPHOCYTIC LEUKAEMIA
     Dosage: 17.5 MILLIGRAM DAILY;
     Route: 048
     Dates: start: 20170604, end: 20170710

REACTIONS (1)
  - Hepatocellular injury [Recovered/Resolved]

NARRATIVE: CASE EVENT DATE: 20170710
